FAERS Safety Report 5482536-8 (Version None)
Quarter: 2007Q4

REPORT INFORMATION
  Report Type: 
  Country: None (occurrence: None)
  Receive Date: 20071011
  Receipt Date: 20070912
  Transmission Date: 20080405
  Serious: No
  Sender: FDA-Public Use
  Company Number: A0660333A

PATIENT
  Age: 59 Year
  Sex: Female

DRUGS (6)
  1. TYKERB [Suspect]
     Indication: BREAST CANCER
     Dosage: 1500MG PER DAY
     Route: 048
     Dates: start: 20070622, end: 20070622
  2. GEMZAR [Concomitant]
  3. PHENERGAN HCL [Concomitant]
  4. ANZEMET [Concomitant]
  5. EMEND [Concomitant]
  6. AMBIEN [Concomitant]

REACTIONS (4)
  - NAUSEA [None]
  - OVERDOSE [None]
  - SOMNOLENCE [None]
  - VOMITING [None]
